FAERS Safety Report 13757201 (Version 1)
Quarter: 2017Q3

REPORT INFORMATION
  Report Type: Spontaneous
  Country: US (occurrence: US)
  Receive Date: 20170714
  Receipt Date: 20170714
  Transmission Date: 20171127
  Serious: No
  Sender: FDA-Public Use
  Company Number: None

PATIENT
  Age: 60 Year
  Sex: Female

DRUGS (1)
  1. LOSARTAN. [Suspect]
     Active Substance: LOSARTAN
     Dosage: ?          OTHER DOSE:MG;?75MG DAILY ORAL
     Route: 048
     Dates: start: 20170626, end: 20170711

REACTIONS (1)
  - Malaise [None]

NARRATIVE: CASE EVENT DATE: 20170626
